FAERS Safety Report 17751108 (Version 1)
Quarter: 2020Q2

REPORT INFORMATION
  Report Type: Report from Study
  Country: US (occurrence: US)
  Receive Date: 20200506
  Receipt Date: 20200506
  Transmission Date: 20200714
  Serious: Yes (Hospitalization)
  Sender: FDA-Public Use
  Company Number: US-TEVA-2020-US-1220200

PATIENT
  Sex: Female

DRUGS (4)
  1. AUSTEDO [Suspect]
     Active Substance: DEUTETRABENAZINE
     Indication: TARDIVE DYSKINESIA
     Dosage: ONCE A DAY, TAKING IT WITH FOOD
     Route: 048
     Dates: start: 202003, end: 202004
  2. AUSTEDO [Suspect]
     Active Substance: DEUTETRABENAZINE
     Dosage: 18 MILLIGRAM DAILY; 18 MILLIGRAMS DAILY
     Route: 048
  3. AUSTEDO [Suspect]
     Active Substance: DEUTETRABENAZINE
     Dosage: 12 MILLIGRAM DAILY; 6 MG TWICE DAILY; WILL TITRATE UP AS HER DOCTOR HAS DIRECTED
     Route: 048
     Dates: start: 202004
  4. AUSTEDO [Suspect]
     Active Substance: DEUTETRABENAZINE
     Dosage: 24 MILLIGRAM DAILY; NOW TAKING 24 MILLIGRAMS PER DAY
     Route: 048

REACTIONS (6)
  - Vertigo [Unknown]
  - Nausea [Unknown]
  - Oxygen saturation decreased [Unknown]
  - Vomiting [Recovering/Resolving]
  - Malaise [Unknown]
  - Abdominal discomfort [Unknown]
